FAERS Safety Report 5830727-6 (Version None)
Quarter: 2008Q3

REPORT INFORMATION
  Report Type: 
  Country: None (occurrence: None)
  Receive Date: 20080801
  Receipt Date: 20071024
  Transmission Date: 20090109
  Serious: No
  Sender: FDA-Public Use
  Company Number: US-BRISTOL-MYERS SQUIBB COMPANY-13953781

PATIENT
  Age: 61 Year
  Sex: Male
  Weight: 90 kg

DRUGS (4)
  1. COUMADIN [Suspect]
     Indication: PULMONARY EMBOLISM
     Dosage: 5 MG 2 DAYS A WEEK AND 2.5 MG 5 DAYS A WEEK.
     Route: 048
     Dates: start: 20070301
  2. FLOMAX [Concomitant]
  3. PRILOSEC [Concomitant]
  4. ASPIRIN [Concomitant]

REACTIONS (1)
  - HEART RATE IRREGULAR [None]
